FAERS Safety Report 9722863 (Version 1)
Quarter: 2013Q4

REPORT INFORMATION
  Report Type: Spontaneous
  Country: US (occurrence: None)
  Receive Date: 20131127
  Receipt Date: 20131127
  Transmission Date: 20140711
  Serious: Yes (Disabling, Other)
  Sender: FDA-Public Use
  Company Number: None

PATIENT
  Age: 34 Year
  Sex: Female
  Weight: 63.5 kg

DRUGS (2)
  1. MINASTRIN 24 FE [Suspect]
     Indication: CONTRACEPTION
     Dosage: 1 PILL PER DAY, ONCE DAILY, TAKEN BY MOUTH
     Dates: start: 20131022
  2. MINASTRIN 24 FE [Suspect]
     Indication: MIGRAINE
     Dosage: 1 PILL PER DAY, ONCE DAILY, TAKEN BY MOUTH
     Dates: start: 20131022

REACTIONS (5)
  - Emotional disorder [None]
  - Menstruation irregular [None]
  - Weight increased [None]
  - Fatigue [None]
  - Mental impairment [None]
